FAERS Safety Report 16310609 (Version 1)
Quarter: 2019Q2

REPORT INFORMATION
  Report Type: Spontaneous
  Country: US (occurrence: US)
  Receive Date: 20190513
  Receipt Date: 20190513
  Transmission Date: 20190711
  Serious: Yes (Other)
  Sender: FDA-Public Use
  Company Number: None

PATIENT
  Age: 35 Year
  Sex: Female
  Weight: 49.5 kg

DRUGS (2)
  1. ADMELOG [Suspect]
     Active Substance: INSULIN LISPRO
     Indication: TYPE 1 DIABETES MELLITUS
     Route: 030
     Dates: start: 20190103
  2. ADMELOG SOLOSTAR [Concomitant]
     Dates: start: 20190103

REACTIONS (2)
  - Nausea [None]
  - Injection site rash [None]

NARRATIVE: CASE EVENT DATE: 20190424
